FAERS Safety Report 6368157-3 (Version None)
Quarter: 2009Q3

REPORT INFORMATION
  Report Type: 
  Country: None (occurrence: None)
  Receive Date: 20090915
  Receipt Date: 20090915
  Transmission Date: 20100115
  Serious: No
  Sender: FDA-Public Use
  Company Number: None

PATIENT
  Sex: Female
  Weight: 63.6 kg

DRUGS (1)
  1. OXYBUTYNIN 10 MG MYLAN LABORATORIES INC. [Suspect]
     Indication: FIBROMYALGIA
     Dosage: 10 MG QD (PRN) ORAL
     Route: 048
     Dates: start: 20090729, end: 20090810

REACTIONS (1)
  - DRUG DISPENSING ERROR [None]
